FAERS Safety Report 6190111-5 (Version None)
Quarter: 2009Q2

REPORT INFORMATION
  Report Type: 
  Country: None (occurrence: None)
  Receive Date: 20090513
  Receipt Date: 20090513
  Transmission Date: 20091009
  Serious: No
  Sender: FDA-Public Use
  Company Number: None

PATIENT
  Age: 62 Year
  Sex: Female
  Weight: 81.6475 kg

DRUGS (2)
  1. AZITHROMYCIN [Suspect]
     Indication: BRONCHITIS
     Dosage: 250MG ORAL
     Route: 048
     Dates: start: 20090301
  2. AZITHROMYCIN [Suspect]
     Indication: PHARYNGITIS
     Dosage: 250MG ORAL
     Route: 048
     Dates: start: 20090301

REACTIONS (3)
  - ANAEMIA [None]
  - HYPOGEUSIA [None]
  - PAROSMIA [None]
